FAERS Safety Report 8282326-7 (Version None)
Quarter: 2012Q2

REPORT INFORMATION
  Report Type: 
  Country: None (occurrence: None)
  Receive Date: 20120413
  Receipt Date: 20120413
  Transmission Date: 20120825
  Serious: Yes (Other)
  Sender: FDA-Public Use
  Company Number: None

PATIENT
  Age: 63 Year
  Sex: Female
  Weight: 98.429 kg

DRUGS (1)
  1. MAXZIDE [Suspect]
     Indication: HYPERTENSION
     Route: 048
     Dates: start: 20110801, end: 20110930

REACTIONS (8)
  - RASH [None]
  - PALPITATIONS [None]
  - MUSCLE SPASMS [None]
  - BURNING SENSATION [None]
  - XANTHOPSIA [None]
  - FORMICATION [None]
  - PARAESTHESIA [None]
  - HYPOAESTHESIA [None]
